FAERS Safety Report 9419283 (Version 1)
Quarter: 2013Q3

REPORT INFORMATION
  Report Type: Spontaneous
  Country: US (occurrence: US)
  Receive Date: 20130725
  Receipt Date: 20130725
  Transmission Date: 20140515
  Serious: No
  Sender: FDA-Public Use
  Company Number: US-GLAXOSMITHKLINE-A1002902A

PATIENT
  Age: 30 Year
  Sex: Female

DRUGS (4)
  1. LAMICTAL [Suspect]
     Indication: PARAESTHESIA
     Route: 048
     Dates: start: 2010, end: 20121024
  2. CYMBALTA [Concomitant]
  3. SUBOXONE [Concomitant]
  4. LEVOXYL [Concomitant]

REACTIONS (1)
  - Alopecia [Recovering/Resolving]
